FAERS Safety Report 7791757-0 (Version None)
Quarter: 2011Q3

REPORT INFORMATION
  Report Type: 
  Country: None (occurrence: None)
  Receive Date: 20110929
  Receipt Date: 20110923
  Transmission Date: 20111222
  Serious: Yes (Hospitalization)
  Sender: FDA-Public Use
  Company Number: 123952

PATIENT
  Age: 54 Year
  Sex: Male

DRUGS (1)
  1. OCTREOTIDE ACETATE [Suspect]
     Indication: HAEMATEMESIS
     Dosage: 50MICROGRAM IV BOLUS FOLLOWED BY CONTINUOUS
     Route: 040

REACTIONS (1)
  - THROMBOCYTOPENIA [None]
